FAERS Safety Report 10030687 (Version 1)
Quarter: 2014Q1

REPORT INFORMATION
  Report Type: Spontaneous
  Country: US (occurrence: US)
  Receive Date: 20140323
  Receipt Date: 20140323
  Transmission Date: 20141002
  Serious: No
  Sender: FDA-Public Use
  Company Number: US-ALLERGAN-1319432US

PATIENT
  Age: 67 Year
  Sex: Female

DRUGS (3)
  1. LATISSE 0.03% [Suspect]
     Indication: GROWTH OF EYELASHES
     Dosage: 2 GTT, QHS
     Route: 061
  2. LYRICA [Concomitant]
     Indication: PAIN
     Dosage: 100 MG, TID
     Route: 048
  3. AVINZA                             /00036302/ [Concomitant]
     Indication: PAIN
     Dosage: 30 MG, BID
     Route: 048

REACTIONS (2)
  - Application site swelling [Unknown]
  - Drug ineffective [Unknown]
